FAERS Safety Report 18918552 (Version 2)
Quarter: 2021Q1

REPORT INFORMATION
  Report Type: Spontaneous
  Country: GB (occurrence: GB)
  Receive Date: 20210220
  Receipt Date: 20210312
  Transmission Date: 20210420
  Serious: Yes (Life-Threatening, Other)
  Sender: FDA-Public Use
  Company Number: GB-AUROBINDO-AUR-APL-2021-006794

PATIENT
  Age: 79 Year
  Sex: Male
  Weight: 88 kg

DRUGS (8)
  1. CINNARIZINE [Concomitant]
     Active Substance: CINNARIZINE
     Indication: PRODUCT USED FOR UNKNOWN INDICATION
     Dosage: 15 MILLIGRAM, 3 TIMES A DAY
     Route: 065
     Dates: start: 20210203
  2. PHENYTOIN. [Concomitant]
     Active Substance: PHENYTOIN
     Indication: PRODUCT USED FOR UNKNOWN INDICATION
     Dosage: 200 MILLILITER, (TAKE 3 MLS (18 MG) AT NIGHT AS PER NEUROLOGIST LETTER 12/11/2020. 30MG/5ML.)
     Route: 065
     Dates: start: 20201130
  3. DULOXETINE GASTRO?RESISTANT CAPSULES, HARD [Suspect]
     Active Substance: DULOXETINE
     Indication: PRODUCT USED FOR UNKNOWN INDICATION
     Dosage: 20 MILLIGRAM, ONCE A DAY
     Route: 065
     Dates: start: 20210203, end: 20210205
  4. DULOXETINE GASTRO?RESISTANT CAPSULES, HARD [Suspect]
     Active Substance: DULOXETINE
     Dosage: 20 MILLIGRAM, ONCE A DAY
     Route: 065
     Dates: start: 20210205
  5. DOXEPIN [Concomitant]
     Active Substance: DOXEPIN
     Indication: PAIN
     Dosage: 30 GRAM, 3 TIMES A DAY
     Route: 065
     Dates: start: 20210129
  6. ZOPICLONE [Concomitant]
     Active Substance: ZOPICLONE
     Indication: PRODUCT USED FOR UNKNOWN INDICATION
     Dosage: 3.75 MILLIGRAM, AT NIGHT, IF REQUIRED
     Route: 065
     Dates: start: 20201231
  7. COVID?19 VACCINE [Concomitant]
     Indication: COVID-19 IMMUNISATION
     Dosage: 0.5 MILLILITER
     Route: 030
  8. PARACETAMOL [Concomitant]
     Active Substance: ACETAMINOPHEN
     Indication: PRODUCT USED FOR UNKNOWN INDICATION
     Dosage: 500 MG, EVERY 4 OR 6 H
     Route: 065
     Dates: start: 20210105

REACTIONS (1)
  - Suicidal ideation [Recovered/Resolved]

NARRATIVE: CASE EVENT DATE: 20210204
